FAERS Safety Report 10449001 (Version 1)
Quarter: 2014Q3

REPORT INFORMATION
  Report Type: Report from Study
  Country: US (occurrence: US)
  Receive Date: 20140912
  Receipt Date: 20140912
  Transmission Date: 20150326
  Serious: Yes (Hospitalization)
  Sender: FDA-Public Use
  Company Number: US-ROCHE-1298759

PATIENT
  Age: 49 Year
  Sex: Male

DRUGS (12)
  1. VALCYTE [Concomitant]
     Active Substance: VALGANCICLOVIR HYDROCHLORIDE
  2. MYCOPHENOLATE MOFETIL. [Suspect]
     Active Substance: MYCOPHENOLATE MOFETIL
     Indication: RENAL TRANSPLANT
     Route: 048
  3. LEVEMIR [Concomitant]
     Active Substance: INSULIN DETEMIR
  4. NOVOLOG [Concomitant]
     Active Substance: INSULIN ASPART
  5. FLORINEF ACETATE [Concomitant]
     Active Substance: FLUDROCORTISONE ACETATE
  6. BELATACEPT [Suspect]
     Active Substance: BELATACEPT
     Indication: RENAL TRANSPLANT
     Dosage: DATE OF MOST RECENT ADMINISTRATION: 27/JUL/2013
     Route: 042
     Dates: start: 20130410
  7. BACTRIM [Concomitant]
     Active Substance: SULFAMETHOXAZOLE\TRIMETHOPRIM
     Route: 065
  8. VITAMIN B12 [Concomitant]
     Active Substance: CYANOCOBALAMIN
  9. PROAMATINE [Concomitant]
     Active Substance: MIDODRINE HYDROCHLORIDE
  10. NYSTATIN. [Concomitant]
     Active Substance: NYSTATIN
  11. PEPCID [Concomitant]
     Active Substance: FAMOTIDINE
  12. LIPITOR [Concomitant]
     Active Substance: ATORVASTATIN CALCIUM

REACTIONS (3)
  - Orthostatic hypotension [Unknown]
  - Parvovirus infection [Recovered/Resolved]
  - Anaemia [Unknown]

NARRATIVE: CASE EVENT DATE: 20130725
